FAERS Safety Report 5073044-7 (Version None)
Quarter: 2006Q3

REPORT INFORMATION
  Report Type: 
  Country: None (occurrence: None)
  Receive Date: 20060802
  Receipt Date: 20060724
  Transmission Date: 20061208
  Serious: Yes (Congenital Anomaly)
  Sender: FDA-Public Use
  Company Number: 2006004100

PATIENT
  Sex: Male

DRUGS (4)
  1. VIRACEPT [Suspect]
     Indication: HIV TEST POSITIVE
     Dosage: 2500 MG (UNKNOWN); ORAL
     Route: 048
     Dates: start: 20020502
  2. RETROVIR [Suspect]
     Indication: HIV TEST POSITIVE
     Dosage: 400 MG (UNKNOWN) ORAL
     Route: 048
     Dates: start: 20020205
  3. EPIVIR [Suspect]
     Indication: HIV TEST POSITIVE
     Dosage: 300 MG (UNKNOWN); ORAL
     Route: 048
     Dates: start: 20020401
  4. ZERIT [Suspect]
     Indication: HIV TEST POSITIVE
     Dosage: 60 MG (UNKNOWN); ORAL
     Route: 048
     Dates: end: 20020501

REACTIONS (4)
  - CONGENITAL ANAEMIA [None]
  - DRUG EXPOSURE DURING PREGNANCY [None]
  - PATENT DUCTUS ARTERIOSUS [None]
  - PREMATURE BABY [None]
